FAERS Safety Report 15865802 (Version 26)
Quarter: 2022Q3

REPORT INFORMATION
  Report Type: Spontaneous
  Country: CA (occurrence: CA)
  Receive Date: 20190125
  Receipt Date: 20220715
  Transmission Date: 20221026
  Serious: Yes (Other)
  Sender: FDA-Public Use
  Company Number: CA-CELLTRION INC.-2019CA018251

PATIENT

DRUGS (44)
  1. INFLECTRA [Suspect]
     Active Substance: INFLIXIMAB-DYYB
     Indication: Colitis ulcerative
     Dosage: 10 MG/KG (1200 MG)  (HOSPITAL START), AT 0, 2, 6 THEN 600 MG MAINTENANCE EVERY 8 WEEKS
     Route: 042
     Dates: start: 20190109, end: 20210217
  2. INFLECTRA [Suspect]
     Active Substance: INFLIXIMAB-DYYB
     Dosage: 10 MG/KG (1200 MG), AT 0, 2, 6 THEN 5 MG/KG MAINTENANCE EVERY 8 WEEKS
     Route: 042
     Dates: start: 20190124
  3. INFLECTRA [Suspect]
     Active Substance: INFLIXIMAB-DYYB
     Dosage: 10 MG/KG (1200 MG), AT 0, 2,6  THEN 5 MG/KG MAINTENANCE EVERY 8 WEEKS
     Route: 042
     Dates: start: 20190220
  4. INFLECTRA [Suspect]
     Active Substance: INFLIXIMAB-DYYB
     Dosage: 10 MG/KG (1200 MG), AT 0, 2,6  THEN 5 MG/KG MAINTENANCE EVERY 8 WEEKS
     Route: 042
     Dates: start: 20190416
  5. INFLECTRA [Suspect]
     Active Substance: INFLIXIMAB-DYYB
     Dosage: 10 MG/KG (1200 MG), AT 0, 2,6  THEN 5 MG/KG MAINTENANCE EVERY 8 WEEKS
     Route: 042
     Dates: start: 20190611
  6. INFLECTRA [Suspect]
     Active Substance: INFLIXIMAB-DYYB
     Dosage: 10 MG/KG (1200 MG), AT 0, 2,6  THEN 5 MG/KG MAINTENANCE EVERY 8 WEEKS
     Route: 042
     Dates: start: 20190806
  7. INFLECTRA [Suspect]
     Active Substance: INFLIXIMAB-DYYB
     Dosage: 10 MG/KG (1200 MG), AT 0, 2,6  THEN 5 MG/KG MAINTENANCE EVERY 8 WEEKS
     Route: 042
     Dates: start: 20191002
  8. INFLECTRA [Suspect]
     Active Substance: INFLIXIMAB-DYYB
     Dosage: 10 MG/KG (1200 MG), AT 0, 2,6  THEN 5 MG/KG MAINTENANCE EVERY 8 WEEKS
     Route: 042
     Dates: start: 20191127
  9. INFLECTRA [Suspect]
     Active Substance: INFLIXIMAB-DYYB
     Dosage: 10 MG/KG (1200 MG), WEEK 0,2,6 THEN 600 MG EVERY 8 WEEKS
     Route: 042
     Dates: start: 20200122
  10. INFLECTRA [Suspect]
     Active Substance: INFLIXIMAB-DYYB
     Dosage: 10 MG/KG (1200 MG), AT 0, 2,6  THEN 5 MG/KG MAINTENANCE EVERY 8 WEEKS
     Route: 042
     Dates: start: 20200122
  11. INFLECTRA [Suspect]
     Active Substance: INFLIXIMAB-DYYB
     Dosage: 10 MG/KG (1200 MG), AT 0, 2,6  THEN 5 MG/KG MAINTENANCE EVERY 8 WEEKS
     Route: 042
     Dates: start: 20200317
  12. INFLECTRA [Suspect]
     Active Substance: INFLIXIMAB-DYYB
     Dosage: 10 MG/KG (1200 MG), AT 0, 2,6  THEN 5 MG/KG MAINTENANCE EVERY 8 WEEKS
     Route: 042
     Dates: start: 20200511
  13. INFLECTRA [Suspect]
     Active Substance: INFLIXIMAB-DYYB
     Dosage: 1200 MG OR 10 MG PER KG AT 0, 2,6  THEN 5 MG/KG MAINTENANCE EVERY 8 WEEKS
     Route: 042
     Dates: start: 20200717
  14. INFLECTRA [Suspect]
     Active Substance: INFLIXIMAB-DYYB
     Dosage: 1200 MG (10 MG/KG) AT 0, 2,6  THEN 5 MG/KG MAINTENANCE EVERY 8 WEEKS
     Route: 042
     Dates: start: 20200901
  15. INFLECTRA [Suspect]
     Active Substance: INFLIXIMAB-DYYB
     Dosage: 1200 MG (10 MG/KG) AT 0, 2,6  THEN 5 MG/KG MAINTENANCE EVERY 8 WEEKS
     Route: 042
     Dates: start: 20201223
  16. INFLECTRA [Suspect]
     Active Substance: INFLIXIMAB-DYYB
     Dosage: 1200 MG (10 MG/KG) AT 0, 2,6  THEN 5 MG/KG MAINTENANCE EVERY 8 WEEKS
     Route: 042
     Dates: start: 20210217
  17. INFLECTRA [Suspect]
     Active Substance: INFLIXIMAB-DYYB
     Dosage: 600 MG, EVERY 8 WEEKS
     Route: 042
     Dates: start: 20210414
  18. INFLECTRA [Suspect]
     Active Substance: INFLIXIMAB-DYYB
     Dosage: 600 MG, EVERY 8 WEEKS
     Route: 042
     Dates: start: 20210609
  19. INFLECTRA [Suspect]
     Active Substance: INFLIXIMAB-DYYB
     Dosage: 600 MG, EVERY 8 WEEKS
     Route: 042
     Dates: start: 20210804
  20. INFLECTRA [Suspect]
     Active Substance: INFLIXIMAB-DYYB
     Dosage: 600 MG, EVERY 8 WEEKS
     Route: 042
     Dates: start: 20210929
  21. INFLECTRA [Suspect]
     Active Substance: INFLIXIMAB-DYYB
     Dosage: 600 MG, EVERY 8 WEEKS
     Route: 042
     Dates: start: 20211124
  22. INFLECTRA [Suspect]
     Active Substance: INFLIXIMAB-DYYB
     Dosage: 600 MG, EVERY 8 WEEKS
     Route: 042
     Dates: start: 20220119
  23. INFLECTRA [Suspect]
     Active Substance: INFLIXIMAB-DYYB
     Dosage: 600 MG, EVERY 8 WEEKS
     Route: 042
     Dates: start: 20220119
  24. INFLECTRA [Suspect]
     Active Substance: INFLIXIMAB-DYYB
     Dosage: 600 MG, EVERY 8 WEEKS
     Route: 042
     Dates: start: 20220201
  25. INFLECTRA [Suspect]
     Active Substance: INFLIXIMAB-DYYB
     Dosage: 600 MG, EVERY 8 WEEKS
     Route: 042
     Dates: start: 20220201
  26. INFLECTRA [Suspect]
     Active Substance: INFLIXIMAB-DYYB
     Dosage: 600 MG, EVERY 8 WEEKS
     Route: 042
     Dates: start: 20220316
  27. INFLECTRA [Suspect]
     Active Substance: INFLIXIMAB-DYYB
     Dosage: 600 MG, EVERY 8 WEEKS
     Route: 042
     Dates: start: 20220511
  28. INFLECTRA [Suspect]
     Active Substance: INFLIXIMAB-DYYB
     Dosage: 600 MG, EVERY 8 WEEKS
     Route: 042
     Dates: start: 20220706
  29. ACETOL [Concomitant]
     Dosage: 800 MG, 4X/DAY
  30. ASACOL [Concomitant]
     Active Substance: MESALAMINE
     Dosage: 800 MG, 2X/DAY
  31. ASACOL [Concomitant]
     Active Substance: MESALAMINE
     Dosage: 800 MG, 2X/DAY
  32. ASACOL [Concomitant]
     Active Substance: MESALAMINE
     Dosage: 800 MG, 4X/DAY
     Route: 065
  33. DILTIAZEM HYDROCHLORIDE [Concomitant]
     Active Substance: DILTIAZEM HYDROCHLORIDE
     Dosage: 240 MG, DAILY
     Route: 065
     Dates: start: 2019
  34. DILTIAZEM [Concomitant]
     Active Substance: DILTIAZEM
     Dosage: 240 MG
  35. METOPROLOL [Concomitant]
     Active Substance: METOPROLOL
     Dosage: 25 MG, DAILY
     Dates: end: 2019
  36. METHOTREXATE [Concomitant]
     Active Substance: METHOTREXATE
     Dosage: UNK
  37. METHOTREXATE [Concomitant]
     Active Substance: METHOTREXATE
     Dosage: 2.5 MG, UNK
     Route: 065
  38. PREDNISONE [Concomitant]
     Active Substance: PREDNISONE
     Dosage: 40 MG, DAILY(2 1/2 TABLETS A DAY THIS WEEK, THEN 2 TABLETS NEXT WEEK))
     Route: 048
  39. PREDNISONE [Concomitant]
     Active Substance: PREDNISONE
     Dosage: 1 DF, DOSAGE NOT AVAILABLE
     Route: 048
  40. PREVNAR [Concomitant]
     Active Substance: PNEUMOCOCCAL 7-VALENT CONJUGATE VACCINE (DIPHTHERIA CRM197 PROTEIN)
     Indication: Pneumococcal infection
     Dosage: UNK, SINGLE INJECTION (FIRST DOSE)
     Route: 065
     Dates: start: 2019, end: 2019
  41. SOLU-MEDROL [Concomitant]
     Active Substance: METHYLPREDNISOLONE SODIUM SUCCINATE
     Dosage: 1 DF;DOSAGE NOT AVAILABLE - UNKNOWN IF ONGOING
     Route: 042
  42. VITAMINS [Concomitant]
     Active Substance: VITAMINS
     Dosage: 1 DF (DOSAGE NOT AVAILABLE)
     Route: 065
  43. XARELTO [Concomitant]
     Active Substance: RIVAROXABAN
     Dosage: UNK
  44. XARELTO [Concomitant]
     Active Substance: RIVAROXABAN
     Dosage: 20 MG, UNK, DOSAGE NOT AVAILABLE
     Route: 065

REACTIONS (19)
  - Atrial fibrillation [Unknown]
  - Diverticulitis [Recovered/Resolved]
  - Diverticulum [Recovered/Resolved]
  - Insomnia [Unknown]
  - Fatigue [Unknown]
  - Abdominal pain upper [Unknown]
  - Asthenia [Unknown]
  - Mood swings [Unknown]
  - Body temperature fluctuation [Unknown]
  - Blood pressure fluctuation [Unknown]
  - Condition aggravated [Not Recovered/Not Resolved]
  - Weight increased [Unknown]
  - Off label use [Unknown]
  - Off label use [Unknown]
  - Intentional product use issue [Unknown]
  - Off label use [Unknown]
  - Inappropriate schedule of product administration [Unknown]
  - Rash [Unknown]
  - Blood pressure increased [Not Recovered/Not Resolved]

NARRATIVE: CASE EVENT DATE: 20190101
